FAERS Safety Report 15288777 (Version 4)
Quarter: 2018Q4

REPORT INFORMATION
  Report Type: Spontaneous
  Country: AU (occurrence: AU)
  Receive Date: 20180817
  Receipt Date: 20181205
  Transmission Date: 20190204
  Serious: Yes (Disabling, Other)
  Sender: FDA-Public Use
  Company Number: AU-APOTEX-2018AP018810

PATIENT
  Sex: Male

DRUGS (1)
  1. APO-ATORVASTATIN [Suspect]
     Active Substance: ATORVASTATIN
     Indication: BLOOD CHOLESTEROL ABNORMAL
     Dosage: 1 DF, Q.H.S.
     Route: 065

REACTIONS (8)
  - Sensory loss [Unknown]
  - Muscular weakness [Not Recovered/Not Resolved]
  - Gait inability [Recovering/Resolving]
  - Muscle spasms [Not Recovered/Not Resolved]
  - Pain in extremity [Recovering/Resolving]
  - Loss of employment [Unknown]
  - Disability [Recovering/Resolving]
  - Malaise [Unknown]
